FAERS Safety Report 25178698 (Version 1)
Quarter: 2025Q2

REPORT INFORMATION
  Report Type: Spontaneous
  Country: US (occurrence: US)
  Receive Date: 20250409
  Receipt Date: 20250409
  Transmission Date: 20250717
  Serious: No
  Sender: BIOGEN
  Company Number: US-BIOGEN-2025BI01306960

PATIENT
  Sex: Female

DRUGS (3)
  1. VUMERITY [Suspect]
     Active Substance: DIROXIMEL FUMARATE
     Indication: Multiple sclerosis
     Route: 050
     Dates: start: 20250406
  2. VUMERITY [Suspect]
     Active Substance: DIROXIMEL FUMARATE
     Route: 050
     Dates: start: 20250320
  3. BENADRYL [Suspect]
     Active Substance: DIPHENHYDRAMINE HYDROCHLORIDE
     Indication: Swelling face
     Route: 050

REACTIONS (12)
  - Headache [Unknown]
  - Dysphoria [Unknown]
  - Paraesthesia [Unknown]
  - Swelling face [Unknown]
  - Feeling of body temperature change [Unknown]
  - Chills [Unknown]
  - Body temperature decreased [Unknown]
  - Fatigue [Unknown]
  - Sleep disorder [Unknown]
  - Pruritus [Unknown]
  - Erythema [Unknown]
  - Flushing [Recovered/Resolved]

NARRATIVE: CASE EVENT DATE: 20250101
